FAERS Safety Report 9278683 (Version 1)
Quarter: 2013Q2

REPORT INFORMATION
  Report Type: Spontaneous
  Country: US (occurrence: None)
  Receive Date: 20130506
  Receipt Date: 20130506
  Transmission Date: 20140414
  Serious: Yes (Other)
  Sender: FDA-Public Use
  Company Number: None

PATIENT
  Age: 15 Year
  Sex: Male
  Weight: 59.1 kg

DRUGS (15)
  1. METHOTREXATE [Suspect]
     Indication: OSTEOSARCOMA
     Route: 042
     Dates: start: 20130425, end: 20130425
  2. DEXAMETHASONE [Concomitant]
  3. FAMOTIDINE [Concomitant]
  4. LIDOCAINE TOPICAL CREAM 4% [Concomitant]
  5. ONDANSETRON [Concomitant]
  6. DIPHENHYDRAMINE [Concomitant]
  7. CHOLECALCIFEROL VIT D3 [Concomitant]
  8. CALCIUM CARBONATE TAB [Concomitant]
  9. CHLORHEXIDINE 0.12 % ORAL SOLN [Concomitant]
  10. POTAS/SODIUM PHOSPH PKT [Concomitant]
  11. POTASSIUM CHLORIDE CAP [Concomitant]
  12. MAGNESIUM HYDROXIDE TAB [Concomitant]
  13. SULFAMETH/TRIMETH DS TAB [Concomitant]
  14. LEUCOVORIN TAB [Concomitant]
  15. D5W 0.2 NS + SODIUM BICARBONATE INJ VIAL [Concomitant]

REACTIONS (1)
  - Blood creatinine increased [None]
